FAERS Safety Report 7295425-3 (Version None)
Quarter: 2011Q1

REPORT INFORMATION
  Report Type: 
  Country: None (occurrence: None)
  Receive Date: 20110216
  Receipt Date: 20110118
  Transmission Date: 20110831
  Serious: No
  Sender: FDA-Public Use
  Company Number: US-ABBOTT-11P-163-0698130-00

PATIENT
  Sex: Male
  Weight: 95.34 kg

DRUGS (3)
  1. MULTI-VITAMIN [Concomitant]
     Indication: PRODUCT USED FOR UNKNOWN INDICATION
  2. SIMCOR [Suspect]
     Indication: HYPERLIPIDAEMIA
     Dates: start: 20090101
  3. SIMCOR [Suspect]
     Indication: HYPERLIPIDAEMIA
     Dosage: DAILY AT BEDTIME

REACTIONS (3)
  - FEELING ABNORMAL [None]
  - BRONCHITIS [None]
  - FEELING HOT [None]
